FAERS Safety Report 5530630-5 (Version None)
Quarter: 2007Q4

REPORT INFORMATION
  Report Type: 
  Country: None (occurrence: None)
  Receive Date: 20071130
  Receipt Date: 20071121
  Transmission Date: 20080405
  Serious: Yes (Disabling)
  Sender: FDA-Public Use
  Company Number: B0479512A

PATIENT
  Age: 45 Year
  Sex: Female
  Weight: 78 kg

DRUGS (2)
  1. TYKERB [Suspect]
     Dosage: 1250MG PER DAY
     Route: 048
     Dates: start: 20070608, end: 20070627
  2. XELODA [Suspect]
     Dosage: 3000MG PER DAY
     Route: 048
     Dates: start: 20070610, end: 20070623

REACTIONS (4)
  - DERMATITIS ACNEIFORM [None]
  - DIARRHOEA [None]
  - FUNGAL INFECTION [None]
  - MUCOSAL INFLAMMATION [None]
